FAERS Safety Report 10481374 (Version 1)
Quarter: 2014Q3

REPORT INFORMATION
  Report Type: Spontaneous
  Country: US (occurrence: None)
  Receive Date: 20140908
  Receipt Date: 20140908
  Transmission Date: 20150326
  Serious: Yes (Hospitalization, Other)
  Sender: FDA-Public Use
  Company Number: 386004

PATIENT
  Age: 74 Year
  Sex: Female
  Weight: 125.6 kg

DRUGS (12)
  1. NOVOLOG [Concomitant]
     Active Substance: INSULIN ASPART
  2. VITAMIN C [Concomitant]
     Active Substance: ASCORBIC ACID
  3. DESENEX (TOLNAFTATE) [Concomitant]
     Active Substance: TOLNAFTATE
  4. MULTIVITAMIN (ASCORBIC ACID, CALCIUM PANTOTHENATE, ERGOCALCIFEROL, NICOTINAMIDE, PYRIDOXINE HYDROCHLORIDE, RETINOL, RIBOFLAVIN, THIAMINE HYDROCHLORIDE) [Concomitant]
  5. SERTRALINE [Concomitant]
     Active Substance: SERTRALINE HYDROCHLORIDE
  6. VICTOZA [Suspect]
     Active Substance: LIRAGLUTIDE
     Indication: TYPE 2 DIABETES MELLITUS
     Route: 058
     Dates: start: 20120712, end: 20120825
  7. AMLODIPINE [Concomitant]
     Active Substance: AMLODIPINE BESYLATE
  8. COUMADIN [Concomitant]
     Active Substance: WARFARIN SODIUM
  9. ROCALTROL (CALCITRIOL) [Concomitant]
  10. HYDRALAZINE (HYDRALAZINE) [Concomitant]
     Active Substance: HYDRALAZINE HYDROCHLORIDE
  11. FERROUS SULFATE [Concomitant]
     Active Substance: FERROUS SULFATE\FERROUS SULFATE, DRIED
  12. LANTUS [Concomitant]
     Active Substance: INSULIN GLARGINE

REACTIONS (1)
  - Pancreatitis [None]

NARRATIVE: CASE EVENT DATE: 20120825
